FAERS Safety Report 5958275-3 (Version None)
Quarter: 2008Q4

REPORT INFORMATION
  Report Type: 
  Country: None (occurrence: None)
  Receive Date: 20081119
  Receipt Date: 20081112
  Transmission Date: 20090506
  Serious: Yes (Other)
  Sender: FDA-Public Use
  Company Number: US-ELI_LILLY_AND_COMPANY-US200811002765

PATIENT
  Sex: Female

DRUGS (2)
  1. HUMALOG [Suspect]
  2. HUMULIN 70/30 [Suspect]

REACTIONS (4)
  - BLINDNESS [None]
  - HYPOACUSIS [None]
  - MUSCULAR WEAKNESS [None]
  - OPTIC NERVE INJURY [None]
